FAERS Safety Report 4712481-4 (Version None)
Quarter: 2005Q3

REPORT INFORMATION
  Report Type: 
  Country: None (occurrence: None)
  Receive Date: 20050711
  Receipt Date: 20050627
  Transmission Date: 20060218
  Serious: Yes (Hospitalization, Other)
  Sender: FDA-Public Use
  Company Number: 2005087496

PATIENT
  Age: 75 Year
  Sex: Female
  Weight: 59.8748 kg

DRUGS (4)
  1. BEXTRA [Suspect]
     Indication: BACK PAIN
     Dosage: 10 MG (10 MG 1 IN 1D) ORAL
     Route: 048
     Dates: start: 20020101
  2. CELEBREX [Suspect]
     Indication: BACK PAIN
     Dosage: 200 MG (200 MG 1 IN 1 D) ORAL
     Route: 048
     Dates: start: 20011203, end: 20020101
  3. LOPRESSOR [Concomitant]
  4. VITAMIN B12(VITAMIN B12) [Concomitant]

REACTIONS (7)
  - BACK PAIN [None]
  - INFECTION [None]
  - KNEE ARTHROPLASTY [None]
  - RASH ERYTHEMATOUS [None]
  - SCAR [None]
  - SKIN LACERATION [None]
  - STOMACH DISCOMFORT [None]
